FAERS Safety Report 9512236 (Version 2)
Quarter: 2014Q1

REPORT INFORMATION
  Report Type: Report from Study
  Country: DE (occurrence: DE)
  Receive Date: 20130910
  Receipt Date: 20140219
  Transmission Date: 20141002
  Serious: Yes (Other)
  Sender: FDA-Public Use
  Company Number: PHHY2013DE098965

PATIENT
  Sex: Female

DRUGS (6)
  1. FTY 720 [Suspect]
     Dosage: 0.5 MG, QD
     Route: 048
     Dates: start: 20130103
  2. VENLAFAXINE [Concomitant]
     Indication: DEPRESSION
     Dosage: 75 MG, QD
     Route: 048
     Dates: start: 20100106
  3. OXCARBAZEPINE [Concomitant]
     Indication: TRIGEMINAL NEURALGIA
     Dosage: 600 MG, TID
     Route: 048
     Dates: start: 20100106
  4. TRAMADOLOR [Concomitant]
     Indication: TRIGEMINAL NEURALGIA
     Dosage: 100 MG, QD
     Route: 048
     Dates: start: 20100902
  5. BACLOFEN [Concomitant]
     Indication: MUSCLE SPASTICITY
     Dosage: 10 MG, TID
     Route: 048
     Dates: start: 20100414
  6. SPASMEX [Concomitant]
     Indication: URGE INCONTINENCE
     Dosage: 30 MG, QD
     Route: 048
     Dates: start: 20120116

REACTIONS (1)
  - Intracranial aneurysm [Recovered/Resolved]
